FAERS Safety Report 6504112-8 (Version None)
Quarter: 2009Q4

REPORT INFORMATION
  Report Type: 
  Country: None (occurrence: None)
  Receive Date: 20091215
  Receipt Date: 20091214
  Transmission Date: 20100525
  Serious: Yes (Other)
  Sender: FDA-Public Use
  Company Number: SP02607

PATIENT
  Age: 32 Year
  Sex: Male

DRUGS (2)
  1. MOVIPREP [Suspect]
     Indication: BOWEL PREPARATION
     Dosage: ORAL
     Route: 048
  2. PICOLAX [Concomitant]

REACTIONS (3)
  - BRONCHOSPASM [None]
  - DYSPNOEA [None]
  - RASH [None]
